FAERS Safety Report 23144597 (Version 5)
Quarter: 2024Q1

REPORT INFORMATION
  Report Type: Spontaneous
  Country: US (occurrence: US)
  Receive Date: 20231103
  Receipt Date: 20240308
  Transmission Date: 20240410
  Serious: No
  Sender: FDA-Public Use
  Company Number: US-PFIZER INC-PV202300054147

PATIENT
  Age: 82 Year
  Sex: Female

DRUGS (1)
  1. IBRANCE [Suspect]
     Active Substance: PALBOCICLIB
     Indication: Breast cancer
     Dosage: 7 DAYS WITHOUT TAKING

REACTIONS (4)
  - Myalgia [Unknown]
  - Muscle spasms [Unknown]
  - Sciatica [Unknown]
  - Product dose omission in error [Unknown]
